FAERS Safety Report 8175874-1 (Version None)
Quarter: 2012Q1

REPORT INFORMATION
  Report Type: 
  Country: None (occurrence: None)
  Receive Date: 20120301
  Receipt Date: 20120222
  Transmission Date: 20120608
  Serious: Yes (Hospitalization, Other)
  Sender: FDA-Public Use
  Company Number: US-SANOFI-AVENTIS-2012SA012080

PATIENT
  Age: 71 Year
  Sex: Female

DRUGS (3)
  1. LANTUS [Suspect]
     Dosage: DOSE:35 UNIT(S)
     Route: 058
     Dates: start: 20020101
  2. HUMALOG [Concomitant]
  3. LANTUS [Suspect]
     Dosage: DOSE:35 UNIT(S)
     Route: 058
     Dates: start: 20020101

REACTIONS (6)
  - HYPOGLYCAEMIA [None]
  - PRODUCT QUALITY ISSUE [None]
  - LEG AMPUTATION [None]
  - OSTEOMYELITIS [None]
  - GENERAL PHYSICAL HEALTH DETERIORATION [None]
  - BLADDER CANCER [None]
